FAERS Safety Report 9003666 (Version 1)
Quarter: 2013Q1

REPORT INFORMATION
  Report Type: Spontaneous
  Country: US (occurrence: US)
  Receive Date: 20130108
  Receipt Date: 20130108
  Transmission Date: 20140127
  Serious: No
  Sender: FDA-Public Use
  Company Number: US-GLAXOSMITHKLINE-A0957333A

PATIENT
  Age: 48 Year
  Sex: Male

DRUGS (2)
  1. LOVAZA [Suspect]
     Indication: PROPHYLAXIS
     Dosage: 2G TWICE PER DAY
     Route: 048
  2. ACTOS [Concomitant]

REACTIONS (1)
  - Pain in extremity [Unknown]
